FAERS Safety Report 7315203-6 (Version None)
Quarter: 2011Q1

REPORT INFORMATION
  Report Type: 
  Country: None (occurrence: None)
  Receive Date: 20110215
  Receipt Date: 20110202
  Transmission Date: 20110831
  Serious: Yes (Death, Other)
  Sender: FDA-Public Use
  Company Number: 2007-02489

PATIENT
  Age: 71 Year
  Sex: Female
  Weight: 45 kg

DRUGS (22)
  1. JUVELA (TOCOPHEROL) TABLET [Concomitant]
  2. ISODINE (POVIDONE-IODINE) [Concomitant]
  3. SELTOUCH (FELBINAC) [Concomitant]
  4. INDOMETHACIN [Concomitant]
  5. DEXAMETHASONE (DEXAMETHASONE) [Concomitant]
  6. NIVADIL (NILVADIPINE) [Concomitant]
  7. NEUTROGIN (LENOGRASTIM) [Concomitant]
  8. PASIL (PAZUFLOXACIN) [Concomitant]
  9. GLYCYRRHIZIC ACID (GLYCYRRHIZIC ACID) [Concomitant]
  10. MOBIC [Concomitant]
  11. ASPIRIN [Concomitant]
  12. VELCADE [Suspect]
     Indication: MULTIPLE MYELOMA
     Dosage: 1.80 MG, INTRAVENOUS; 1.7 MG, INTRAVENOUS
     Route: 042
     Dates: start: 20070312, end: 20070412
  13. VELCADE [Suspect]
     Indication: MULTIPLE MYELOMA
     Dosage: 1.80 MG, INTRAVENOUS; 1.7 MG, INTRAVENOUS
     Route: 042
     Dates: start: 20070507, end: 20080408
  14. ISOSORBIDE DINITRATE [Concomitant]
  15. ZOVIRAX /00587301/ (ACICLOVIR) [Concomitant]
  16. AMLODIPINE BESYLATE [Concomitant]
  17. ZOMETA [Concomitant]
  18. HIRUDOID /00723701/ (HEPARINOID) [Concomitant]
  19. METHYCOBAL (MECOBALAMIN) TABLET [Concomitant]
  20. GASMOTIN (MOSAPRIDE CITRATE) [Concomitant]
  21. AMOBAN (ZOPICLONE) TABLET [Concomitant]
  22. GASTER D (FAMOTIDINE) [Concomitant]

REACTIONS (15)
  - NAUSEA [None]
  - DECREASED APPETITE [None]
  - ABDOMINAL PAIN UPPER [None]
  - ABDOMINAL DISCOMFORT [None]
  - DIARRHOEA [None]
  - STOMATITIS [None]
  - FATIGUE [None]
  - LEUKOPENIA [None]
  - THROMBOCYTOPENIA [None]
  - MULTIPLE MYELOMA [None]
  - BACK PAIN [None]
  - NEUTROPENIA [None]
  - DISEASE PROGRESSION [None]
  - ABDOMINAL DISTENSION [None]
  - CHEST PAIN [None]
